FAERS Safety Report 6643565-1 (Version None)
Quarter: 2010Q1

REPORT INFORMATION
  Report Type: 
  Country: None (occurrence: None)
  Receive Date: 20100320
  Receipt Date: 20100310
  Transmission Date: 20100710
  Serious: Yes (Hospitalization)
  Sender: FDA-Public Use
  Company Number: ZA-B.I. PHARMACEUTICALS,INC./RIDGEFIELD-2010-BP-03203BP

PATIENT
  Age: 32 Year

DRUGS (2)
  1. VIRAMUNE [Suspect]
     Indication: ANTIRETROVIRAL THERAPY
  2. COMBIVIR [Concomitant]
     Indication: ANTIVIRAL TREATMENT

REACTIONS (4)
  - DEEP VEIN THROMBOSIS [None]
  - HEADACHE [None]
  - HYPOTENSION [None]
  - MENSTRUAL DISORDER [None]
